FAERS Safety Report 5830454-5 (Version None)
Quarter: 2008Q3

REPORT INFORMATION
  Report Type: 
  Country: None (occurrence: None)
  Receive Date: 20080801
  Receipt Date: 20080717
  Transmission Date: 20090109
  Serious: Yes (Hospitalization)
  Sender: FDA-Public Use
  Company Number: IL-GENENTECH-264642

PATIENT
  Age: 56 Year
  Sex: Female

DRUGS (1)
  1. XOLAIR [Suspect]
     Indication: ARTHROPOD STING
     Dosage: 150 MG, SINGLE
     Dates: start: 20080622

REACTIONS (1)
  - ANAPHYLACTIC REACTION [None]
